FAERS Safety Report 11610625 (Version 30)
Quarter: 2018Q3

REPORT INFORMATION
  Report Type: Report from Study
  Country: CA (occurrence: CA)
  Receive Date: 20151008
  Receipt Date: 20180720
  Transmission Date: 20181010
  Serious: Yes (Hospitalization, Other)
  Sender: FDA-Public Use
  Company Number: CA-ROCHE-1157939

PATIENT
  Age: 42 Year
  Sex: Male
  Weight: 120 kg

DRUGS (11)
  1. ACTEMRA [Suspect]
     Active Substance: TOCILIZUMAB
     Indication: RHEUMATOID ARTHRITIS
     Route: 042
     Dates: start: 20121019
  2. ACTONEL [Concomitant]
     Active Substance: RISEDRONATE SODIUM
  3. PERCOCET [Concomitant]
     Active Substance: ACETAMINOPHEN\OXYCODONE HYDROCHLORIDE
     Route: 065
  4. ACTEMRA [Suspect]
     Active Substance: TOCILIZUMAB
     Route: 042
     Dates: start: 20131115
  5. RITUXAN [Suspect]
     Active Substance: RITUXIMAB
     Indication: RHEUMATOID ARTHRITIS
     Route: 042
     Dates: start: 20090331, end: 20090414
  6. PREDNISONE. [Suspect]
     Active Substance: PREDNISONE
     Indication: PRODUCT USED FOR UNKNOWN INDICATION
     Route: 065
  7. FOLIC ACID. [Concomitant]
     Active Substance: FOLIC ACID
  8. METHOTREXATE. [Concomitant]
     Active Substance: METHOTREXATE
  9. ACTEMRA [Suspect]
     Active Substance: TOCILIZUMAB
     Route: 042
     Dates: start: 20140820
  10. ACTEMRA [Suspect]
     Active Substance: TOCILIZUMAB
     Dosage: HOLD
     Route: 042
  11. TYLENOL WITH CODEINE [Concomitant]
     Active Substance: ACETAMINOPHEN\CODEINE PHOSPHATE
     Route: 065

REACTIONS (26)
  - Headache [Recovered/Resolved]
  - Blood pressure increased [Unknown]
  - Anxiety [Recovering/Resolving]
  - Localised infection [Unknown]
  - Limb injury [Recovered/Resolved]
  - Hypertension [Unknown]
  - Device dislocation [Unknown]
  - Drug ineffective [Unknown]
  - Weight increased [Unknown]
  - Foot fracture [Unknown]
  - Injection site extravasation [Unknown]
  - Blood pressure increased [Unknown]
  - Insomnia [Recovering/Resolving]
  - Blood pressure systolic increased [Unknown]
  - Hyperhidrosis [Not Recovered/Not Resolved]
  - Heart rate decreased [Unknown]
  - Infusion related reaction [Unknown]
  - Fluid retention [Unknown]
  - Hand fracture [Unknown]
  - Arthritis infective [Unknown]
  - Influenza [Not Recovered/Not Resolved]
  - Cellulitis [Not Recovered/Not Resolved]
  - Pyrexia [Unknown]
  - Wound infection [Not Recovered/Not Resolved]
  - Vein disorder [Unknown]
  - Headache [Not Recovered/Not Resolved]

NARRATIVE: CASE EVENT DATE: 20121026
